FAERS Safety Report 23363535 (Version 1)
Quarter: 2024Q1

REPORT INFORMATION
  Report Type: Spontaneous
  Country: FR (occurrence: FR)
  Receive Date: 20240103
  Receipt Date: 20240103
  Transmission Date: 20240409
  Serious: Yes (Death)
  Sender: FDA-Public Use
  Company Number: None

PATIENT
  Age: 75 Year
  Sex: Male
  Weight: 87.5 kg

DRUGS (2)
  1. ALIMTA [Suspect]
     Active Substance: PEMETREXED DISODIUM
     Indication: Lung adenocarcinoma stage IV
     Dosage: 500 MG/M2, WEEKLY (1/W)
     Route: 042
     Dates: start: 20210305, end: 20210809
  2. KEYTRUDA [Suspect]
     Active Substance: PEMBROLIZUMAB
     Indication: Lung adenocarcinoma stage IV
     Dosage: 200 MG, WEEKLY (1/W)
     Route: 042
     Dates: start: 20210305, end: 20210507

REACTIONS (5)
  - Oxygen saturation decreased [Fatal]
  - Dyspnoea [Fatal]
  - Cough [Fatal]
  - Interstitial lung disease [Fatal]
  - Interstitial lung disease [Fatal]

NARRATIVE: CASE EVENT DATE: 20210520
